FAERS Safety Report 18683035 (Version 1)
Quarter: 2020Q4

REPORT INFORMATION
  Report Type: Spontaneous
  Country: IT (occurrence: IT)
  Receive Date: 20201230
  Receipt Date: 20201230
  Transmission Date: 20210114
  Serious: Yes (Hospitalization)
  Sender: FDA-Public Use
  Company Number: IT-TEVA-2020-IT-1863064

PATIENT
  Age: 43 Year
  Sex: Male

DRUGS (7)
  1. PREGABALIN. [Suspect]
     Active Substance: PREGABALIN
     Indication: NEURALGIA
  2. TAMOXIFEN [Suspect]
     Active Substance: TAMOXIFEN
     Indication: PRODUCT USED FOR UNKNOWN INDICATION
     Route: 065
  3. TRAMADOL. [Suspect]
     Active Substance: TRAMADOL
     Indication: MYOFASCIAL PAIN SYNDROME
     Dosage: MAXIMAL DAILY DOSE OF 300 MG CONTINUED FOR 30 DAYS
     Route: 065
  4. DULOXETINE. [Suspect]
     Active Substance: DULOXETINE
     Indication: MYOFASCIAL PAIN SYNDROME
     Route: 065
  5. DULOXETINE. [Suspect]
     Active Substance: DULOXETINE
     Indication: NEURALGIA
  6. TRAMADOL. [Suspect]
     Active Substance: TRAMADOL
     Indication: NEURALGIA
  7. PREGABALIN. [Suspect]
     Active Substance: PREGABALIN
     Indication: MYOFASCIAL PAIN SYNDROME
     Dosage: 300 MILLIGRAM DAILY; MAXIMAL DAILY DOSE WAS 300 MG CONTINUED FOR 30 DAYS
     Route: 065

REACTIONS (3)
  - Myofascial pain syndrome [Recovered/Resolved]
  - Neuralgia [Recovered/Resolved]
  - Drug ineffective [Unknown]
